FAERS Safety Report 11283842 (Version 3)
Quarter: 2015Q3

REPORT INFORMATION
  Report Type: Spontaneous
  Country: BR (occurrence: BR)
  Receive Date: 20150720
  Receipt Date: 20150904
  Transmission Date: 20151125
  Serious: Yes (Other)
  Sender: FDA-Public Use
  Company Number: BR-SA-2015SA017313

PATIENT
  Age: 47 Year
  Sex: Female
  Weight: 80 kg

DRUGS (7)
  1. FUROSEMIDE. [Suspect]
     Active Substance: FUROSEMIDE
     Route: 065
  2. METFORMIN [Concomitant]
     Active Substance: METFORMIN HYDROCHLORIDE
     Indication: DIABETES MELLITUS
     Route: 048
     Dates: start: 2014
  3. SIMVASTATIN. [Concomitant]
     Active Substance: SIMVASTATIN
     Indication: BLOOD CHOLESTEROL INCREASED
     Route: 048
     Dates: start: 2014
  4. CLORANA [Suspect]
     Active Substance: HYDROCHLOROTHIAZIDE
     Indication: HYPERTENSION
     Route: 048
     Dates: start: 2009, end: 201502
  5. ATENOLOL. [Concomitant]
     Active Substance: ATENOLOL
     Indication: HYPERTENSION
     Route: 048
     Dates: start: 2008
  6. CLORANA [Suspect]
     Active Substance: HYDROCHLOROTHIAZIDE
     Indication: HYPERTENSION
     Route: 048
  7. ENALAPRIL [Concomitant]
     Active Substance: ENALAPRIL
     Indication: HYPERTENSION
     Route: 048
     Dates: start: 2008

REACTIONS (27)
  - Nocturia [Recovering/Resolving]
  - Gout [Recovering/Resolving]
  - Hallucination, visual [Unknown]
  - Headache [Recovering/Resolving]
  - Pain [Recovering/Resolving]
  - Pain in extremity [Recovering/Resolving]
  - Hepatic steatosis [Recovering/Resolving]
  - Retching [Recovering/Resolving]
  - Blood triglycerides increased [Recovering/Resolving]
  - Hallucination, auditory [Unknown]
  - Dysstasia [Recovering/Resolving]
  - Pruritus [Recovering/Resolving]
  - Abnormal faeces [Unknown]
  - Abdominal distension [Unknown]
  - Onychalgia [Unknown]
  - Memory impairment [Unknown]
  - Paraesthesia [Recovering/Resolving]
  - Blood uric acid increased [Recovering/Resolving]
  - Urine output increased [Recovering/Resolving]
  - Agitation [Recovering/Resolving]
  - Vomiting [Recovering/Resolving]
  - Asthenia [Unknown]
  - Diabetes mellitus [Recovering/Resolving]
  - Insomnia [Recovering/Resolving]
  - Liver disorder [Recovering/Resolving]
  - Arthralgia [Recovering/Resolving]
  - Parosmia [Unknown]

NARRATIVE: CASE EVENT DATE: 2012
